FAERS Safety Report 23117163 (Version 1)
Quarter: 2023Q4

REPORT INFORMATION
  Report Type: Spontaneous
  Country: PL (occurrence: PL)
  Receive Date: 20231027
  Receipt Date: 20231027
  Transmission Date: 20240109
  Serious: Yes (Death, Other)
  Sender: FDA-Public Use
  Company Number: PL-SANDOZ-SDZ2023PL033384

PATIENT
  Age: 49 Year
  Sex: Male

DRUGS (64)
  1. BENDAMUSTINE [Suspect]
     Active Substance: BENDAMUSTINE
     Indication: Diffuse large B-cell lymphoma
     Dosage: UNK
     Dates: start: 20220916, end: 20220918
  2. BENDAMUSTINE [Suspect]
     Active Substance: BENDAMUSTINE
     Dosage: UNK
     Dates: start: 20221007, end: 20221008
  3. BENDAMUSTINE [Suspect]
     Active Substance: BENDAMUSTINE
     Dosage: UNK
     Dates: start: 20221127, end: 20221128
  4. VINCRISTINE [Suspect]
     Active Substance: VINCRISTINE
     Indication: Diffuse large B-cell lymphoma
     Dosage: 1ST CYCLE
     Dates: start: 20201215, end: 20201218
  5. VINCRISTINE [Suspect]
     Active Substance: VINCRISTINE
     Dosage: 5TH CYCLE
     Dates: start: 20210315, end: 20210316
  6. VINCRISTINE [Suspect]
     Active Substance: VINCRISTINE
     Dosage: 4THC CYCLE
     Dates: start: 20210219, end: 20210220
  7. VINCRISTINE [Suspect]
     Active Substance: VINCRISTINE
     Dosage: 3RD CYCLE
     Dates: start: 20210129, end: 20210130
  8. VINCRISTINE [Suspect]
     Active Substance: VINCRISTINE
     Dosage: 6TH CYCLE
     Dates: start: 20210406, end: 20210407
  9. VINCRISTINE [Suspect]
     Active Substance: VINCRISTINE
     Dosage: 8TH CYCLE
     Dates: start: 20210520, end: 20210521
  10. VINCRISTINE [Suspect]
     Active Substance: VINCRISTINE
     Dosage: 7TH CYCLE
     Dates: start: 20210429
  11. VINCRISTINE [Suspect]
     Active Substance: VINCRISTINE
     Dosage: 2ND CYCLE
     Dates: start: 20210105, end: 20210106
  12. DOXORUBICIN [Suspect]
     Active Substance: DOXORUBICIN
     Indication: Diffuse large B-cell lymphoma
     Dosage: 2ND CYCLE
     Dates: start: 20210105, end: 20210106
  13. DOXORUBICIN [Suspect]
     Active Substance: DOXORUBICIN
     Dosage: 5TH CYCLE
     Dates: start: 20210315, end: 20210316
  14. DOXORUBICIN [Suspect]
     Active Substance: DOXORUBICIN
     Dosage: 6TH CYCLE
     Dates: start: 20210406, end: 20210407
  15. DOXORUBICIN [Suspect]
     Active Substance: DOXORUBICIN
     Dosage: 3RD CYCLE
     Dates: start: 20210129, end: 20210130
  16. DOXORUBICIN [Suspect]
     Active Substance: DOXORUBICIN
     Dosage: 8TH CYCLE
     Dates: start: 20210520, end: 20210521
  17. DOXORUBICIN [Suspect]
     Active Substance: DOXORUBICIN
     Dosage: 4TH CYCLE
     Dates: start: 20210219, end: 20210220
  18. DOXORUBICIN [Suspect]
     Active Substance: DOXORUBICIN
     Dosage: 1ST CYCLE
     Dates: start: 20201215, end: 20201218
  19. DOXORUBICIN [Suspect]
     Active Substance: DOXORUBICIN
     Dosage: 7TH CYCLE
     Dates: start: 20210429
  20. CISPLATIN [Suspect]
     Active Substance: CISPLATIN
     Indication: Diffuse large B-cell lymphoma
     Dosage: UNK
     Dates: start: 20220702, end: 20220704
  21. CISPLATIN [Suspect]
     Active Substance: CISPLATIN
     Dosage: UNK
     Dates: start: 20220607, end: 20220609
  22. METHOTREXATE [Suspect]
     Active Substance: METHOTREXATE
     Indication: Diffuse large B-cell lymphoma
     Dosage: 8TH CYCLE
     Dates: start: 20210520, end: 20210521
  23. METHOTREXATE [Suspect]
     Active Substance: METHOTREXATE
     Dosage: 7TH CYCLE
     Dates: start: 20210429
  24. METHOTREXATE [Suspect]
     Active Substance: METHOTREXATE
     Dosage: 6TH CYCLE
     Dates: start: 20210406, end: 20210407
  25. METHOTREXATE [Suspect]
     Active Substance: METHOTREXATE
     Dosage: 1ST CYCLE
     Dates: start: 20201215, end: 20201218
  26. METHOTREXATE [Suspect]
     Active Substance: METHOTREXATE
     Dosage: 4TH CYCLE
     Dates: start: 20210219, end: 20210220
  27. METHOTREXATE [Suspect]
     Active Substance: METHOTREXATE
     Dosage: 2ND CYCLE
     Dates: start: 20210105, end: 20210106
  28. METHOTREXATE [Suspect]
     Active Substance: METHOTREXATE
     Dosage: 3RD CYCLE
     Dates: start: 20210129, end: 20210130
  29. METHOTREXATE [Suspect]
     Active Substance: METHOTREXATE
     Dosage: 5TH CYCLE
     Dates: start: 20210315, end: 20210316
  30. CYCLOPHOSPHAMIDE [Suspect]
     Active Substance: CYCLOPHOSPHAMIDE
     Indication: Diffuse large B-cell lymphoma
     Dosage: 5TH CYCLE
     Dates: start: 20210315, end: 20210316
  31. CYCLOPHOSPHAMIDE [Suspect]
     Active Substance: CYCLOPHOSPHAMIDE
     Dosage: 2ND CYCLE
     Dates: start: 20210105, end: 20210106
  32. CYCLOPHOSPHAMIDE [Suspect]
     Active Substance: CYCLOPHOSPHAMIDE
     Dosage: 3RD CYCLE
     Dates: start: 20210129, end: 20210130
  33. CYCLOPHOSPHAMIDE [Suspect]
     Active Substance: CYCLOPHOSPHAMIDE
     Dosage: 6TH CYCLE
     Dates: start: 20210406, end: 20210407
  34. CYCLOPHOSPHAMIDE [Suspect]
     Active Substance: CYCLOPHOSPHAMIDE
     Dosage: 7TH CYCLE
     Dates: start: 20210429
  35. CYCLOPHOSPHAMIDE [Suspect]
     Active Substance: CYCLOPHOSPHAMIDE
     Dosage: 1ST CYCLE
     Dates: start: 20201215, end: 20201218
  36. CYCLOPHOSPHAMIDE [Suspect]
     Active Substance: CYCLOPHOSPHAMIDE
     Dosage: 4TH CYCLE
     Dates: start: 20210219, end: 20210220
  37. CYCLOPHOSPHAMIDE [Suspect]
     Active Substance: CYCLOPHOSPHAMIDE
     Dosage: 8TH CYCLE
     Dates: start: 20210520, end: 20210521
  38. POLATUZUMAB VEDOTIN [Suspect]
     Active Substance: POLATUZUMAB VEDOTIN
     Indication: Diffuse large B-cell lymphoma
  39. RITUXIMAB [Suspect]
     Active Substance: RITUXIMAB
     Indication: Diffuse large B-cell lymphoma
     Dosage: UNK
     Dates: start: 20220607, end: 20220609
  40. RITUXIMAB [Suspect]
     Active Substance: RITUXIMAB
     Dosage: 8TH CYCLE
     Dates: start: 20210520, end: 20210521
  41. RITUXIMAB [Suspect]
     Active Substance: RITUXIMAB
     Dosage: 7TH CYCLE
     Dates: start: 20210429
  42. RITUXIMAB [Suspect]
     Active Substance: RITUXIMAB
     Dosage: 2ND CYCLE
     Dates: start: 20210105, end: 20210106
  43. RITUXIMAB [Suspect]
     Active Substance: RITUXIMAB
     Dosage: UNK
     Dates: start: 20220702, end: 20220704
  44. RITUXIMAB [Suspect]
     Active Substance: RITUXIMAB
     Dosage: 6TH CYCLE
     Dates: start: 20210406, end: 20210407
  45. RITUXIMAB [Suspect]
     Active Substance: RITUXIMAB
     Dosage: 3RD CYCLE
     Dates: start: 20210129, end: 20210130
  46. RITUXIMAB [Suspect]
     Active Substance: RITUXIMAB
     Dosage: 4TH CYCLE
     Dates: start: 20210219, end: 20210220
  47. RITUXIMAB [Suspect]
     Active Substance: RITUXIMAB
     Dosage: UNK
     Dates: start: 20221007, end: 20221008
  48. RITUXIMAB [Suspect]
     Active Substance: RITUXIMAB
     Dosage: 5TH CYCLE
     Dates: start: 20210315, end: 20210316
  49. RITUXIMAB [Suspect]
     Active Substance: RITUXIMAB
     Dosage: UNK
     Dates: start: 20221127, end: 20221129
  50. RITUXIMAB [Suspect]
     Active Substance: RITUXIMAB
     Dosage: 1ST CYCLE
     Dates: start: 20201215, end: 20201218
  51. RITUXIMAB [Suspect]
     Active Substance: RITUXIMAB
     Dosage: UNK
     Dates: start: 20220916, end: 20220918
  52. DEXAMETHASONE [Suspect]
     Active Substance: DEXAMETHASONE
     Indication: Diffuse large B-cell lymphoma
     Dosage: UNK
     Dates: start: 20220702, end: 20220704
  53. DEXAMETHASONE [Suspect]
     Active Substance: DEXAMETHASONE
     Dosage: UNK
     Dates: start: 20220607, end: 20220609
  54. PREDNISONE [Suspect]
     Active Substance: PREDNISONE
     Indication: Diffuse large B-cell lymphoma
     Dosage: 6TH CYCLE
     Dates: start: 20210406, end: 20210407
  55. PREDNISONE [Suspect]
     Active Substance: PREDNISONE
     Dosage: 8TH CYCLE
     Dates: start: 20210520, end: 20210521
  56. PREDNISONE [Suspect]
     Active Substance: PREDNISONE
     Dosage: 5TH CYCLE
     Dates: start: 20210315, end: 20210316
  57. PREDNISONE [Suspect]
     Active Substance: PREDNISONE
     Dosage: 2ND CYCLE
     Dates: start: 20210105, end: 20210106
  58. PREDNISONE [Suspect]
     Active Substance: PREDNISONE
     Dosage: 7TH CYCLE
     Dates: start: 20210429
  59. PREDNISONE [Suspect]
     Active Substance: PREDNISONE
     Dosage: 4TH CYCLE
     Dates: start: 20210219, end: 20210220
  60. PREDNISONE [Suspect]
     Active Substance: PREDNISONE
     Dosage: 3RD CYCLE
     Dates: start: 20210129, end: 20210130
  61. PREDNISONE [Suspect]
     Active Substance: PREDNISONE
     Dosage: 1ST CYCLE
     Dates: start: 20201215, end: 20201218
  62. CYTARABINE [Suspect]
     Active Substance: CYTARABINE
     Indication: Diffuse large B-cell lymphoma
     Dosage: UNK
     Dates: start: 20220607, end: 20220609
  63. CYTARABINE [Suspect]
     Active Substance: CYTARABINE
     Dosage: UNK
     Dates: start: 20220702, end: 20220704
  64. KYMRIAH [Suspect]
     Active Substance: TISAGENLECLEUCEL
     Indication: Diffuse large B-cell lymphoma
     Dosage: UNK
     Dates: start: 20221207

REACTIONS (4)
  - Death [Fatal]
  - Immune effector cell-associated neurotoxicity syndrome [Recovered/Resolved]
  - Thrombocytopenia [Unknown]
  - Diffuse large B-cell lymphoma recurrent [Unknown]

NARRATIVE: CASE EVENT DATE: 20230408
